FAERS Safety Report 8197271-5 (Version None)
Quarter: 2012Q1

REPORT INFORMATION
  Report Type: 
  Country: None (occurrence: None)
  Receive Date: 20120309
  Receipt Date: 20120228
  Transmission Date: 20120608
  Serious: Yes (Hospitalization)
  Sender: FDA-Public Use
  Company Number: US-PFIZER INC-2008066019

PATIENT
  Sex: Male
  Weight: 59 kg

DRUGS (3)
  1. PACLITAXEL [Suspect]
     Indication: NON-SMALL CELL LUNG CANCER
     Dosage: 200 MG/M2, EVERY 3 WEEKS
     Route: 042
     Dates: start: 20071211, end: 20080429
  2. CARBOPLATIN [Suspect]
     Indication: NON-SMALL CELL LUNG CANCER
     Dosage: AUC=6, EVERY 3 WEEKS
     Route: 042
     Dates: start: 20071211, end: 20080429
  3. CP-751,871 [Suspect]
     Indication: NON-SMALL CELL LUNG CANCER
     Dosage: 20 MG/KG, EVERY 3 WEEKS
     Route: 042
     Dates: start: 20071212, end: 20080710

REACTIONS (2)
  - DYSPNOEA [None]
  - PNEUMONIA [None]
